FAERS Safety Report 19073478 (Version 2)
Quarter: 2021Q2

REPORT INFORMATION
  Report Type: Report from Study
  Country: JP (occurrence: JP)
  Receive Date: 20210330
  Receipt Date: 20210407
  Transmission Date: 20210717
  Serious: Yes (Hospitalization, Other)
  Sender: FDA-Public Use
  Company Number: JP-BRISTOL-MYERS SQUIBB COMPANY-BMS-2021-029893

PATIENT
  Age: 58 Year
  Sex: Female
  Weight: 55 kg

DRUGS (5)
  1. HEPARINOID [Concomitant]
     Active Substance: CHONDROITIN SULFATE (BOVINE)
     Indication: PRURITUS
     Dosage: ADEQUATE DOSE AS NEEDED
     Route: 061
     Dates: start: 20210204
  2. ROSUVASTATIN OD [Concomitant]
     Indication: DYSLIPIDAEMIA
     Dosage: 5 MG, EVERYDAY
     Route: 048
  3. LOTRIGA [Concomitant]
     Active Substance: OMEGA-3-ACID ETHYL ESTERS
     Indication: DYSLIPIDAEMIA
     Dosage: 2 G, EVERYDAY
     Route: 048
  4. BROTIZOLAM OD [Concomitant]
     Active Substance: BROTIZOLAM
     Indication: INSOMNIA
     Dosage: 0.25 MG, EVERYDAY
     Route: 048
     Dates: start: 20210105
  5. NIVOLUMAB [Suspect]
     Active Substance: NIVOLUMAB
     Indication: PERITONEAL MESOTHELIOMA MALIGNANT
     Dosage: 240 MILLIGRAM, Q2WK
     Route: 041
     Dates: start: 20210106, end: 20210305

REACTIONS (1)
  - Optic neuritis [Recovering/Resolving]

NARRATIVE: CASE EVENT DATE: 20210314
